FAERS Safety Report 8522758-2 (Version None)
Quarter: 2012Q3

REPORT INFORMATION
  Report Type: 
  Country: None (occurrence: None)
  Receive Date: 20120719
  Receipt Date: 20120709
  Transmission Date: 20120928
  Serious: Yes (Hospitalization)
  Sender: FDA-Public Use
  Company Number: CO-BAYER-2012-068703

PATIENT
  Age: 30 Year
  Sex: Female

DRUGS (2)
  1. BETASERON [Suspect]
     Indication: MULTIPLE SCLEROSIS
     Dosage: UNK
     Route: 042
     Dates: start: 20120201
  2. DOLEX [PARACETAMOL] [Concomitant]
     Dosage: UNK UNK, QOD ,SAME DAY AS BETAFERON

REACTIONS (5)
  - VOMITING [None]
  - PYREXIA [None]
  - HEADACHE [None]
  - EPISTAXIS [None]
  - MALAISE [None]
